FAERS Safety Report 16109493 (Version 1)
Quarter: 2019Q1

REPORT INFORMATION
  Report Type: Spontaneous
  Country: DE (occurrence: DE)
  Receive Date: 20190324
  Receipt Date: 20190324
  Transmission Date: 20190418
  Serious: Yes (Hospitalization)
  Sender: FDA-Public Use
  Company Number: PHHY2019DE061401

PATIENT
  Age: 69 Year
  Sex: Male
  Weight: 67 kg

DRUGS (3)
  1. VARGATEF [Suspect]
     Active Substance: NINTEDANIB
     Indication: LUNG ADENOCARCINOMA
     Dosage: 200 MG, Q12H DAILY DOSE: 400 MG MILLIGRAM(S) EVERY DAY
     Route: 048
     Dates: start: 20151031
  2. DOCETAXEL. [Suspect]
     Active Substance: DOCETAXEL
     Indication: LUNG ADENOCARCINOMA
     Dosage: FORMULATION: LIQUID. DOSE PER APPLICATION AND DAILY DOSE: 132MG/M2132 MG/M2, QD
     Route: 042
     Dates: start: 20151030
  3. VARGATEF [Suspect]
     Active Substance: NINTEDANIB
     Indication: NON-SMALL CELL LUNG CANCER

REACTIONS (3)
  - Impaired healing [Recovered/Resolved]
  - Diarrhoea [Unknown]
  - Metastases to skin [Recovered/Resolved]

NARRATIVE: CASE EVENT DATE: 20160106
